FAERS Safety Report 23723477 (Version 1)
Quarter: 2024Q2

REPORT INFORMATION
  Report Type: Spontaneous
  Country: US (occurrence: None)
  Receive Date: 20240409
  Receipt Date: 20240409
  Transmission Date: 20240716
  Serious: No
  Sender: FDA-Public Use
  Company Number: None

PATIENT

DRUGS (1)
  1. LATANOPROST PF [Suspect]
     Active Substance: LATANOPROST

REACTIONS (3)
  - Eye irritation [None]
  - Skin exfoliation [None]
  - Eyelid function disorder [None]
